FAERS Safety Report 12298117 (Version 1)
Quarter: 2016Q2

REPORT INFORMATION
  Report Type: Spontaneous
  Country: CA (occurrence: CA)
  Receive Date: 20160423
  Receipt Date: 20160423
  Transmission Date: 20160815
  Serious: Yes (Other)
  Sender: FDA-Public Use
  Company Number: CA-ALLERGAN-1654468US

PATIENT
  Age: 5 Decade
  Sex: Female

DRUGS (1)
  1. FIBRISTAL [Suspect]
     Active Substance: ULIPRISTAL
     Indication: PRODUCT USED FOR UNKNOWN INDICATION

REACTIONS (1)
  - Cerebrovascular accident [Unknown]
